FAERS Safety Report 5689848-3 (Version None)
Quarter: 2008Q2

REPORT INFORMATION
  Report Type: 
  Country: None (occurrence: None)
  Receive Date: 20080401
  Receipt Date: 20080320
  Transmission Date: 20081010
  Serious: Yes (Other)
  Sender: FDA-Public Use
  Company Number: ES-RANBAXY-2008RR-13762

PATIENT

DRUGS (8)
  1. IBUPROFEN TABLETS BP 200MG [Suspect]
     Route: 048
  2. ACETAMINOPHEN [Concomitant]
     Dosage: 250 MG, UNK
     Route: 048
  3. ACETAMINOPHEN [Concomitant]
     Dosage: 500 MG, UNK
     Route: 048
  4. ACETAMINOPHEN [Concomitant]
     Dosage: 2 G, QD
     Route: 048
  5. LYSINE ACETYLSALICYLATE [Concomitant]
  6. ETORICOXIB [Concomitant]
     Dosage: 30 MG, UNK
     Route: 048
  7. ETORICOXIB [Concomitant]
     Dosage: 60 MG, UNK
     Route: 048
  8. ETORICOXIB [Concomitant]
     Dosage: 120 MG, UNK
     Route: 048

REACTIONS (1)
  - BRONCHOSPASM [None]
